FAERS Safety Report 9293704 (Version 1)
Quarter: 2013Q2

REPORT INFORMATION
  Report Type: Report from Study
  Country: CA (occurrence: CA)
  Receive Date: 20130516
  Receipt Date: 20130516
  Transmission Date: 20140414
  Serious: Yes (Other)
  Sender: FDA-Public Use
  Company Number: CA-JNJFOC-20130506866

PATIENT
  Age: 27 Year
  Sex: Female
  Weight: 45.9 kg

DRUGS (14)
  1. REMICADE [Suspect]
     Indication: CROHN^S DISEASE
     Route: 042
     Dates: start: 20130509
  2. REMICADE [Suspect]
     Indication: CROHN^S DISEASE
     Route: 042
     Dates: start: 201104
  3. VITAMIN D [Concomitant]
     Route: 065
  4. CALCIUM [Concomitant]
     Route: 065
  5. MULTIVITAMINS/MINERALS [Concomitant]
     Route: 065
  6. VSL3 [Concomitant]
     Route: 065
  7. PENTASA [Concomitant]
     Route: 065
  8. ONDANSETRON [Concomitant]
     Route: 065
  9. PERCOCET [Concomitant]
     Route: 065
  10. PREDNISONE [Concomitant]
     Route: 065
  11. TARGIN [Concomitant]
     Route: 065
  12. BUTRANS [Concomitant]
     Route: 065
  13. FLAGYL [Concomitant]
     Route: 065
  14. CIPRO [Concomitant]
     Route: 065

REACTIONS (4)
  - Haemorrhage [Recovering/Resolving]
  - Muscle spasms [Recovering/Resolving]
  - Abdominal pain [Recovering/Resolving]
  - Asthenia [Recovering/Resolving]
